FAERS Safety Report 9003841 (Version 1)
Quarter: 2013Q1

REPORT INFORMATION
  Report Type: Spontaneous
  Country: US (occurrence: US)
  Receive Date: 20130108
  Receipt Date: 20130108
  Transmission Date: 20140127
  Serious: No
  Sender: FDA-Public Use
  Company Number: US-GLAXOSMITHKLINE-A0992005A

PATIENT
  Age: 70 Year
  Sex: Female

DRUGS (14)
  1. LOVAZA [Suspect]
     Indication: BLOOD TRIGLYCERIDES INCREASED
     Dosage: 4CAP PER DAY
     Route: 048
     Dates: start: 2007
  2. ALLEGRA [Concomitant]
  3. ASPIRIN [Concomitant]
  4. ASTEPRO [Concomitant]
  5. BETAINE HYDROCHLORIDE [Concomitant]
  6. BIOTIN [Concomitant]
  7. CITRICAL+D [Concomitant]
  8. DICLOFENAC SODIUM [Concomitant]
  9. COQ10 [Concomitant]
  10. DIOVAN [Concomitant]
  11. ESTER C [Concomitant]
  12. PRAVASTATIN [Concomitant]
  13. METROGEL [Concomitant]
  14. VITAMIN E [Concomitant]

REACTIONS (2)
  - Nausea [Recovered/Resolved]
  - Product quality issue [Unknown]
